FAERS Safety Report 11716827 (Version 3)
Quarter: 2015Q4

REPORT INFORMATION
  Report Type: Spontaneous
  Country: US (occurrence: US)
  Receive Date: 20151104
  Receipt Date: 20151120
  Transmission Date: 20160304
  Serious: No
  Sender: FDA-Public Use
  Company Number: US-ELI_LILLY_AND_COMPANY-US201103005363

PATIENT
  Age: 64 Year
  Sex: Female

DRUGS (6)
  1. FORTEO [Suspect]
     Active Substance: TERIPARATIDE
     Dosage: 20 UG, QD
  2. FORTEO [Suspect]
     Active Substance: TERIPARATIDE
     Dosage: 20 UG, QD
  3. ATENOLOL. [Concomitant]
     Active Substance: ATENOLOL
  4. FORTEO [Suspect]
     Active Substance: TERIPARATIDE
     Indication: OSTEOPOROSIS
     Dosage: 20 UG, DAILY (1/D)
     Dates: start: 201103
  5. FORTEO [Suspect]
     Active Substance: TERIPARATIDE
     Dosage: 20 UG, QD
  6. FORTEO [Suspect]
     Active Substance: TERIPARATIDE
     Dosage: 20 UG, QD

REACTIONS (20)
  - Mobility decreased [Not Recovered/Not Resolved]
  - Sensitivity of teeth [Unknown]
  - Haemorrhage [Unknown]
  - Nervousness [Unknown]
  - Drug dose omission [Unknown]
  - Bruxism [Unknown]
  - Calcinosis [Unknown]
  - Heart rate increased [Unknown]
  - Dental caries [Unknown]
  - Hypersensitivity [Not Recovered/Not Resolved]
  - Heart rate increased [Recovering/Resolving]
  - Intentional device misuse [Unknown]
  - Rhinorrhoea [Not Recovered/Not Resolved]
  - Injury associated with device [Unknown]
  - Fatigue [Unknown]
  - Injection site erythema [Unknown]
  - Constipation [Unknown]
  - Overdose [Unknown]
  - Pain in extremity [Unknown]
  - Dizziness [Unknown]

NARRATIVE: CASE EVENT DATE: 201103
